FAERS Safety Report 7362028-1 (Version None)
Quarter: 2011Q1

REPORT INFORMATION
  Report Type: 
  Country: None (occurrence: None)
  Receive Date: 20110315
  Receipt Date: 20110315
  Transmission Date: 20110831
  Serious: Yes (Other)
  Sender: FDA-Public Use
  Company Number: None

PATIENT
  Age: 50 Year
  Sex: Female
  Weight: 63.5036 kg

DRUGS (3)
  1. WELLBUTRIN SR [Suspect]
     Indication: MAJOR DEPRESSION
     Dosage: 100MG QD PO
     Route: 048
     Dates: start: 20030901
  2. WELLBUTRIN SR [Suspect]
     Indication: MAJOR DEPRESSION
     Dosage: 100MG QD PO
     Route: 048
     Dates: start: 20031101
  3. WELLBUTRIN SR [Suspect]
     Indication: MAJOR DEPRESSION
     Dosage: 100MG QD PO
     Route: 048
     Dates: start: 20031001

REACTIONS (3)
  - MORBID THOUGHTS [None]
  - GASTROINTESTINAL DISORDER [None]
  - NO THERAPEUTIC RESPONSE [None]
